FAERS Safety Report 24379836 (Version 1)
Quarter: 2024Q3

REPORT INFORMATION
  Report Type: Spontaneous
  Country: US (occurrence: US)
  Receive Date: 20240930
  Receipt Date: 20240930
  Transmission Date: 20241016
  Serious: No
  Sender: PFIZER
  Company Number: US-PFIZER INC-202400264724

PATIENT
  Age: 39 Year
  Sex: Female

DRUGS (2)
  1. SOLU-MEDROL [Suspect]
     Active Substance: METHYLPREDNISOLONE SODIUM SUCCINATE
     Dosage: UNK
  2. LACTOSE MONOHYDRATE [Suspect]
     Active Substance: LACTOSE MONOHYDRATE
     Dosage: UNK

REACTIONS (3)
  - Reaction to excipient [Unknown]
  - Rash [Unknown]
  - Contraindicated product administered [Unknown]
